FAERS Safety Report 24952060 (Version 2)
Quarter: 2025Q1

REPORT INFORMATION
  Report Type: Spontaneous
  Country: US (occurrence: US)
  Receive Date: 20250210
  Receipt Date: 20250220
  Transmission Date: 20250408
  Serious: No
  Sender: Haleon PLC
  Company Number: US-HALEON-2227209

PATIENT
  Age: 26 Year
  Sex: Male

DRUGS (2)
  1. NICODERM CQ [Suspect]
     Active Substance: NICOTINE
     Indication: Smoking cessation therapy
     Dates: start: 20250206, end: 20250206
  2. NICODERM CQ [Suspect]
     Active Substance: NICOTINE

REACTIONS (4)
  - Skin reaction [Unknown]
  - Dizziness [Unknown]
  - Tobacco poisoning [Unknown]
  - Hyperhidrosis [Unknown]

NARRATIVE: CASE EVENT DATE: 20250206
